FAERS Safety Report 8362207-0 (Version None)
Quarter: 2012Q2

REPORT INFORMATION
  Report Type: 
  Country: None (occurrence: None)
  Receive Date: 20120515
  Receipt Date: 20120508
  Transmission Date: 20120825
  Serious: Yes (Hospitalization, Disabling)
  Sender: FDA-Public Use
  Company Number: US-MERCK-1110USA01560

PATIENT
  Age: 48 Year
  Sex: Female
  Weight: 63 kg

DRUGS (4)
  1. FOSAMAX [Suspect]
     Indication: OSTEOPENIA
     Route: 048
  2. BONIVA [Concomitant]
     Indication: OSTEOPENIA
     Route: 065
     Dates: end: 20080601
  3. FOSAMAX [Suspect]
     Route: 048
     Dates: start: 20021121
  4. FOSAMAX [Suspect]
     Route: 048
     Dates: start: 20100122, end: 20101217

REACTIONS (28)
  - OEDEMA PERIPHERAL [None]
  - SEASONAL AFFECTIVE DISORDER [None]
  - DEPRESSION [None]
  - FRACTURE NONUNION [None]
  - ANAEMIA POSTOPERATIVE [None]
  - PHLEBITIS [None]
  - IMPAIRED HEALING [None]
  - OSTEOARTHRITIS [None]
  - OSTEOPOROSIS [None]
  - LIGAMENT SPRAIN [None]
  - JOINT SWELLING [None]
  - HIP DYSPLASIA [None]
  - LIVER FUNCTION TEST ABNORMAL [None]
  - HYPOTHYROIDISM [None]
  - WEIGHT INCREASED [None]
  - DEPRESSED MOOD [None]
  - FEMORAL NECK FRACTURE [None]
  - HIP DEFORMITY [None]
  - MENISCUS LESION [None]
  - HYPERLIPIDAEMIA [None]
  - HOT FLUSH [None]
  - ANXIETY [None]
  - CONTUSION [None]
  - ADVERSE EVENT [None]
  - ARTHRALGIA [None]
  - FATIGUE [None]
  - ARTHRITIS [None]
  - PAIN [None]
